FAERS Safety Report 25344683 (Version 3)
Quarter: 2025Q3

REPORT INFORMATION
  Report Type: Spontaneous
  Country: US (occurrence: US)
  Receive Date: 20250522
  Receipt Date: 20250822
  Transmission Date: 20251020
  Serious: No
  Sender: SANOFI AVENTIS
  Company Number: US-SA-2025SA144517

PATIENT
  Age: 76 Year
  Sex: Male

DRUGS (1)
  1. DUPIXENT [Suspect]
     Active Substance: DUPILUMAB
     Indication: Dermatitis atopic
     Dosage: 300 MG, QOW
     Route: 058

REACTIONS (7)
  - Stress [Unknown]
  - Dry skin [Unknown]
  - Injection site haemorrhage [Unknown]
  - Memory impairment [Unknown]
  - Pruritus [Recovering/Resolving]
  - Rash [Unknown]
  - Injection site swelling [Unknown]
